FAERS Safety Report 5735064-6 (Version None)
Quarter: 2008Q2

REPORT INFORMATION
  Report Type: 
  Country: None (occurrence: None)
  Receive Date: 20080512
  Receipt Date: 20080502
  Transmission Date: 20081010
  Serious: Yes (Hospitalization, Other)
  Sender: FDA-Public Use
  Company Number: US-ABBOTT-08P-163-0450341-00

PATIENT
  Sex: Female
  Weight: 83.99 kg

DRUGS (15)
  1. HUMIRA [Suspect]
     Indication: RHEUMATOID ARTHRITIS
     Route: 058
     Dates: start: 20050101, end: 20070101
  2. HUMIRA [Suspect]
     Dates: start: 20070101, end: 20080301
  3. HUMIRA [Suspect]
     Dates: start: 20080301
  4. INEGY [Concomitant]
     Indication: HYPERCHOLESTEROLAEMIA
     Dosage: 10/20
  5. TELMISARTAN [Concomitant]
     Indication: HYPERTENSION
     Route: 048
  6. METHOTREXATE [Concomitant]
     Indication: RHEUMATOID ARTHRITIS
     Route: 048
  7. MELOXICAM [Concomitant]
     Indication: RHEUMATOID ARTHRITIS
     Route: 048
  8. RALOXIFENE HYDROCHLORIDE [Concomitant]
     Indication: OSTEOPOROSIS
     Route: 048
  9. ESOMEPRAZOLE MAGNESIUM [Concomitant]
     Indication: PROPHYLAXIS AGAINST GASTROINTESTINAL ULCER
     Route: 048
  10. ALLEGRA D 24 HOUR [Concomitant]
     Indication: SEASONAL ALLERGY
     Route: 048
  11. FOLIC ACID [Concomitant]
     Indication: PROPHYLAXIS
     Route: 048
  12. FOLIC ACID [Concomitant]
     Indication: STOMATITIS
  13. PROPACET 100 [Concomitant]
     Indication: PAIN
     Route: 048
  14. DAILY MULTIVITAMIN [Concomitant]
     Indication: DRUG USE FOR UNKNOWN INDICATION
     Route: 048
  15. CALCIUM D [Concomitant]
     Indication: DRUG USE FOR UNKNOWN INDICATION
     Route: 048

REACTIONS (4)
  - BLOOD POTASSIUM DECREASED [None]
  - DRUG INEFFECTIVE [None]
  - URINARY TRACT INFECTION [None]
  - VIRAL INFECTION [None]
